FAERS Safety Report 26112254 (Version 2)
Quarter: 2025Q4

REPORT INFORMATION
  Report Type: Report from Study
  Country: CO (occurrence: CO)
  Receive Date: 20251202
  Receipt Date: 20251214
  Transmission Date: 20260117
  Serious: Yes (Disabling)
  Sender: ABBVIE
  Company Number: CO-ABBVIE-6569173

PATIENT
  Age: 75 Year
  Sex: Male

DRUGS (2)
  1. BOTOX [Suspect]
     Active Substance: ONABOTULINUMTOXINA
     Indication: Torticollis
     Dosage: TIME INTERVAL: AS NECESSARY: DOSE: 200 UNITS ?FREQUENCY: EVERY 3 MONTHS
     Route: 030
     Dates: start: 20240912, end: 20240912
  2. BOTOX [Suspect]
     Active Substance: ONABOTULINUMTOXINA
     Indication: Torticollis
     Dosage: TIME INTERVAL: AS NECESSARY: 55 UNITS
     Route: 065

REACTIONS (5)
  - Wheelchair user [Unknown]
  - Torticollis [Not Recovered/Not Resolved]
  - Pain [Not Recovered/Not Resolved]
  - Muscle atrophy [Unknown]
  - Tic [Unknown]

NARRATIVE: CASE EVENT DATE: 20250101
